FAERS Safety Report 19130342 (Version 1)
Quarter: 2021Q2

REPORT INFORMATION
  Report Type: Report from Study
  Country: US (occurrence: US)
  Receive Date: 20210413
  Receipt Date: 20210413
  Transmission Date: 20210717
  Serious: Yes (Hospitalization)
  Sender: FDA-Public Use
  Company Number: US-EXELIXIS-XL18421039190

PATIENT

DRUGS (2)
  1. XL184 [Suspect]
     Active Substance: CABOZANTINIB
     Indication: COLON CANCER
     Dosage: 40 MG, QD
     Route: 048
     Dates: start: 20201222
  2. DURVALUMAB. [Suspect]
     Active Substance: DURVALUMAB
     Indication: COLON CANCER
     Dosage: 1500 MG, Q4WEEKS
     Route: 042
     Dates: start: 20201222

REACTIONS (8)
  - Vomiting [Recovered/Resolved]
  - Hyperthyroidism [Unknown]
  - Diarrhoea [Recovering/Resolving]
  - Drug intolerance [Unknown]
  - Decreased appetite [Unknown]
  - Asthenia [Unknown]
  - Metabolic acidosis [Unknown]
  - Nausea [Recovered/Resolved]

NARRATIVE: CASE EVENT DATE: 20210405
